FAERS Safety Report 9019407 (Version 2)
Quarter: 2013Q2

REPORT INFORMATION
  Report Type: Spontaneous
  Country: FR (occurrence: FR)
  Receive Date: 20130118
  Receipt Date: 20130508
  Transmission Date: 20140414
  Serious: Yes (Hospitalization)
  Sender: FDA-Public Use
  Company Number: FR-ASTRAZENECA-2013SE01989

PATIENT
  Age: 24460 Day
  Sex: Female

DRUGS (5)
  1. INEXIUM [Suspect]
     Indication: PROPHYLAXIS
     Route: 048
     Dates: start: 20120616, end: 20120728
  2. NORMIX [Suspect]
     Indication: PROPHYLAXIS
     Route: 048
     Dates: start: 20120616, end: 20120801
  3. VITAMIN B1B6 [Concomitant]
  4. NICOBION [Concomitant]
     Dosage: 500
  5. PHOSPHONEUROS [Concomitant]

REACTIONS (4)
  - Purpura senile [Recovered/Resolved]
  - Toxic skin eruption [Recovered/Resolved]
  - Anaemia [Unknown]
  - Thrombocytopenia [Unknown]
